FAERS Safety Report 8521913-5 (Version None)
Quarter: 2012Q3

REPORT INFORMATION
  Report Type: 
  Country: None (occurrence: None)
  Receive Date: 20120719
  Receipt Date: 20120525
  Transmission Date: 20120928
  Serious: No
  Sender: FDA-Public Use
  Company Number: US-BRISTOL-MYERS SQUIBB COMPANY-16631251

PATIENT

DRUGS (1)
  1. YERVOY [Suspect]
     Dosage: LOT # 918609 (EXP DATE: 6/14) , 918122 (EXP DATE: 5/14).

REACTIONS (1)
  - MEDICATION ERROR [None]
